FAERS Safety Report 12713996 (Version 1)
Quarter: 2016Q3

REPORT INFORMATION
  Report Type: Spontaneous
  Country: US (occurrence: US)
  Receive Date: 20160905
  Receipt Date: 20160905
  Transmission Date: 20161109
  Serious: Yes (Hospitalization, Other)
  Sender: FDA-Public Use
  Company Number: US-009507513-1608USA014805

PATIENT
  Age: 88 Year
  Sex: Female

DRUGS (2)
  1. SINEMET [Suspect]
     Active Substance: CARBIDOPA\LEVODOPA
     Indication: PARKINSON^S DISEASE
     Dosage: UNK
     Route: 048
     Dates: start: 2012
  2. IRON (UNSPECIFIED) [Concomitant]
     Active Substance: IRON
     Route: 048

REACTIONS (3)
  - Pneumonia [Recovered/Resolved]
  - Tremor [Not Recovered/Not Resolved]
  - Drug effect decreased [Not Recovered/Not Resolved]
